FAERS Safety Report 23621379 (Version 1)
Quarter: 2024Q1

REPORT INFORMATION
  Report Type: Other
  Country: BR (occurrence: BR)
  Receive Date: 20240312
  Receipt Date: 20240312
  Transmission Date: 20240409
  Serious: Yes (Hospitalization)
  Sender: FDA-Public Use
  Company Number: BR-B.Braun Medical Inc.-2154266

PATIENT
  Age: 62 Year
  Sex: Male

DRUGS (2)
  1. LIDOCAINE HYDROCHLORIDE [Suspect]
     Active Substance: LIDOCAINE HYDROCHLORIDE
  2. MIDAZOLAM [Concomitant]
     Active Substance: MIDAZOLAM

REACTIONS (8)
  - Off label use [Recovered/Resolved]
  - Auditory disorder [Recovered/Resolved]
  - Deafness [Recovered/Resolved]
  - Balance disorder [Recovered/Resolved]
  - Gait disturbance [Recovered/Resolved]
  - Vertigo CNS origin [Recovered/Resolved]
  - Vomiting [Recovered/Resolved]
  - Nausea [Recovered/Resolved]
